FAERS Safety Report 25990731 (Version 1)
Quarter: 2025Q4

REPORT INFORMATION
  Report Type: Spontaneous
  Country: CN (occurrence: CN)
  Receive Date: 20251103
  Receipt Date: 20251103
  Transmission Date: 20260118
  Serious: Yes (Other)
  Sender: TETRAPHASE PHARMACEUTICALS, INC.
  Company Number: CN-EVEREST-20250700341

PATIENT

DRUGS (1)
  1. XERAVA [Suspect]
     Active Substance: ERAVACYCLINE DIHYDROCHLORIDE
     Indication: Pneumonia
     Dosage: 1 MG/KG, BID (Q12H)
     Route: 065

REACTIONS (2)
  - Liver injury [Recovering/Resolving]
  - Off label use [Unknown]
